FAERS Safety Report 6199177-X (Version None)
Quarter: 2009Q2

REPORT INFORMATION
  Report Type: 
  Country: None (occurrence: None)
  Receive Date: 20090522
  Receipt Date: 20090511
  Transmission Date: 20091009
  Serious: No
  Sender: FDA-Public Use
  Company Number: A0776184A

PATIENT
  Sex: Female

DRUGS (9)
  1. VERAMYST [Suspect]
     Dosage: 2SPR TWICE PER DAY
     Route: 045
     Dates: start: 20090318
  2. UNKNOWN MEDICATION [Concomitant]
  3. LIPITOR [Concomitant]
  4. THYROID MEDICATION [Concomitant]
  5. BIRTH CONTROL PILL [Concomitant]
  6. UNKNOWN MEDICATION [Concomitant]
  7. OXYCONTIN [Concomitant]
  8. LYRICA [Concomitant]
  9. ZOVIRAX [Concomitant]

REACTIONS (4)
  - DRUG INEFFECTIVE [None]
  - HYPERSENSITIVITY [None]
  - OVERDOSE [None]
  - PRODUCT QUALITY ISSUE [None]
